FAERS Safety Report 10990666 (Version 1)
Quarter: 2015Q1

REPORT INFORMATION
  Report Type: Spontaneous
  Country: FR (occurrence: None)
  Receive Date: 20150326
  Receipt Date: 20150326
  Transmission Date: 20150721
  Serious: Yes (Hospitalization)
  Sender: FDA-Public Use
  Company Number: CTI_01646_2014

PATIENT
  Age: 35 Year
  Sex: Female

DRUGS (3)
  1. CELESTENE /00008501/ (UNKNOWN) [Concomitant]
  2. LOXEN (LOXEN- NICARDIPINE ) (NOT SPECIFIED) [Suspect]
     Active Substance: NICARDIPINE
     Indication: PREMATURE LABOUR
     Dosage: 4 MG/HOUR INTRAVNEOUS (NOT OTHERWISE SPECIFIED)
     Route: 042
  3. SALBUTAMOL (UNKNOWN) [Concomitant]
     Active Substance: ALBUTEROL

REACTIONS (2)
  - Off label use [None]
  - Acute pulmonary oedema [None]
